FAERS Safety Report 13695752 (Version 1)
Quarter: 2017Q2

REPORT INFORMATION
  Report Type: Spontaneous
  Country: IT (occurrence: IT)
  Receive Date: 20170627
  Receipt Date: 20170627
  Transmission Date: 20170830
  Serious: Yes (Hospitalization)
  Sender: FDA-Public Use
  Company Number: PHHY2017IT090409

PATIENT
  Age: 44 Year
  Sex: Female
  Weight: 49 kg

DRUGS (8)
  1. DOXORUBICINA ACCORD [Concomitant]
     Indication: NON-HODGKIN^S LYMPHOMA
     Dosage: 15 MG, UNK
     Route: 042
     Dates: start: 20170228, end: 20170607
  2. VINCRISTINA TEVA [Concomitant]
     Active Substance: VINCRISTINE
     Indication: NON-HODGKIN^S LYMPHOMA
     Dosage: 40 MG, UNK
     Route: 042
     Dates: start: 20170228, end: 20170607
  3. CLARITHROMYCIN. [Suspect]
     Active Substance: CLARITHROMYCIN
     Indication: ANTIBIOTIC PROPHYLAXIS
     Dosage: 1000 MG, EVERY OTHER DAY
     Route: 048
     Dates: start: 20170201, end: 20170530
  4. ETAPIAM [Interacting]
     Active Substance: ETHAMBUTOL HYDROCHLORIDE
     Indication: ANTIBIOTIC PROPHYLAXIS
     Dosage: 1200 MG, EVERY OTHER DAY
     Route: 048
     Dates: start: 20170201, end: 20170530
  5. RIFADIN [Interacting]
     Active Substance: RIFAMPIN
     Indication: ANTIBIOTIC PROPHYLAXIS
     Dosage: 600 MG, EVERY OTHER DAY
     Route: 048
     Dates: start: 20170201, end: 20170530
  6. ETOPOSIDE TEVA [Concomitant]
     Active Substance: ETOPOSIDE
     Indication: NON-HODGKIN^S LYMPHOMA
     Dosage: 70 MG, UNK
     Route: 042
     Dates: start: 20170228, end: 20170607
  7. ENDOXAN [Concomitant]
     Active Substance: CYCLOPHOSPHAMIDE
     Indication: NON-HODGKIN^S LYMPHOMA
     Dosage: 720 MG, UNK
     Route: 042
     Dates: start: 20170303, end: 20170611
  8. MABTHERA [Concomitant]
     Active Substance: RITUXIMAB
     Indication: NON-HODGKIN^S LYMPHOMA
     Dosage: 500 MG, UNK
     Route: 042
     Dates: end: 20170606

REACTIONS (4)
  - Hepatotoxicity [Recovering/Resolving]
  - Leukopenia [Recovering/Resolving]
  - Neutropenia [Recovering/Resolving]
  - Drug interaction [Recovering/Resolving]

NARRATIVE: CASE EVENT DATE: 20170508
